FAERS Safety Report 12007696 (Version 2)
Quarter: 2016Q1

REPORT INFORMATION
  Report Type: Spontaneous
  Country: FR (occurrence: FR)
  Receive Date: 20160204
  Receipt Date: 20160219
  Transmission Date: 20160526
  Serious: Yes (Hospitalization)
  Sender: FDA-Public Use
  Company Number: FR-009507513-1602FRA001284

PATIENT
  Age: 76 Year
  Sex: Male

DRUGS (25)
  1. IMIPENEM AND CILASTATIN [Suspect]
     Active Substance: CILASTATIN SODIUM\IMIPENEM
     Indication: ENTEROBACTER PNEUMONIA
  2. METOCLOPRAMIDE. [Concomitant]
     Active Substance: METOCLOPRAMIDE
  3. CLONIDINE HYDROCHLORIDE. [Concomitant]
     Active Substance: CLONIDINE HYDROCHLORIDE
  4. CANCIDAS [Suspect]
     Active Substance: CASPOFUNGIN ACETATE
     Indication: CANDIDA INFECTION
     Dosage: UNK
     Route: 042
     Dates: start: 20150612, end: 20150616
  5. LEVETIRACETAM. [Suspect]
     Active Substance: LEVETIRACETAM
     Dosage: UNK
     Route: 048
     Dates: start: 20150529, end: 20150617
  6. AUGMENTIN [Concomitant]
     Active Substance: AMOXICILLIN\CLAVULANATE POTASSIUM
  7. NIMBEX [Concomitant]
     Active Substance: CISATRACURIUM BESYLATE
  8. TAZOCILLINE [Concomitant]
     Active Substance: PIPERACILLIN SODIUM\TAZOBACTAM SODIUM
  9. PROPOFOL. [Concomitant]
     Active Substance: PROPOFOL
  10. CIFLOX (CIPROFLOXACIN HYDROCHLORIDE (+) HYDROCORTISONE) [Concomitant]
     Active Substance: CIPROFLOXACIN HYDROCHLORIDE\HYDROCORTISONE
  11. CEFTAZIDIME. [Concomitant]
     Active Substance: CEFTAZIDIME
  12. ATROVENT [Concomitant]
     Active Substance: IPRATROPIUM BROMIDE
  13. MIDAZOLAM [Concomitant]
     Active Substance: MIDAZOLAM\MIDAZOLAM HYDROCHLORIDE
     Route: 042
  14. URAPIDIL [Concomitant]
     Active Substance: URAPIDIL
  15. ALBUTEROL SULFATE. [Concomitant]
     Active Substance: ALBUTEROL SULFATE
  16. HEPARINE CHOAY [Suspect]
     Active Substance: HEPARIN SODIUM
     Dosage: UNK
     Route: 042
     Dates: start: 20150611, end: 20150616
  17. LASILIX [Suspect]
     Active Substance: FUROSEMIDE
     Dosage: UNK
     Route: 042
     Dates: start: 20150609, end: 20150616
  18. PANTOPRAZOLE [Suspect]
     Active Substance: PANTOPRAZOLE SODIUM
     Dosage: 20 MG, QD
     Route: 048
     Dates: start: 20150528, end: 20150616
  19. NOREPINEPHRINE [Concomitant]
     Active Substance: NOREPINEPHRINE\NOREPINEPHRINE BITARTRATE
  20. LINEZOLID. [Concomitant]
     Active Substance: LINEZOLID
  21. AMIODARONE [Suspect]
     Active Substance: AMIODARONE
     Dosage: UNK
     Dates: start: 20150620, end: 20150623
  22. ROSUVASTATIN [Concomitant]
     Active Substance: ROSUVASTATIN
  23. IMIPENEM AND CILASTATIN [Suspect]
     Active Substance: CILASTATIN SODIUM\IMIPENEM
     Indication: PNEUMONIA
     Dosage: UNK
     Route: 042
     Dates: start: 20150613, end: 20150616
  24. FLUCONAZOLE. [Concomitant]
     Active Substance: FLUCONAZOLE
  25. RIVOTRIL [Concomitant]
     Active Substance: CLONAZEPAM
     Dosage: 1 MG, UNK

REACTIONS (1)
  - Toxic skin eruption [Recovered/Resolved]

NARRATIVE: CASE EVENT DATE: 20150616
